FAERS Safety Report 16782313 (Version 4)
Quarter: 2020Q3

REPORT INFORMATION
  Report Type: Spontaneous
  Country: US (occurrence: US)
  Receive Date: 20190906
  Receipt Date: 20200901
  Transmission Date: 20201102
  Serious: No
  Sender: FDA-Public Use
  Company Number: US-JNJFOC-20190903591

PATIENT
  Age: 70 Year
  Sex: Female
  Weight: 76.27 kg

DRUGS (4)
  1. DURAGESIC [Suspect]
     Active Substance: FENTANYL
     Indication: PAIN
     Dosage: 25
     Route: 062
  2. DURAGESIC [Suspect]
     Active Substance: FENTANYL
  3. DURAGESIC [Suspect]
     Active Substance: FENTANYL
     Indication: PAIN
     Dosage: 12
     Route: 062
  4. DURAGESIC [Suspect]
     Active Substance: FENTANYL

REACTIONS (2)
  - Product dose omission issue [Unknown]
  - Inadequate analgesia [Unknown]

NARRATIVE: CASE EVENT DATE: 201908
